FAERS Safety Report 9474048 (Version 2)
Quarter: 2013Q3

REPORT INFORMATION
  Report Type: Spontaneous
  Country: JP (occurrence: JP)
  Receive Date: 20130823
  Receipt Date: 20130930
  Transmission Date: 20140515
  Serious: Yes (Death, Hospitalization, Other)
  Sender: FDA-Public Use
  Company Number: PHHY2013JP091467

PATIENT
  Age: 80 Year
  Sex: Male
  Weight: 45 kg

DRUGS (8)
  1. VOLTAREN [Suspect]
     Indication: PAIN
     Dosage: 25 MG, UNK
     Route: 048
     Dates: start: 20100212
  2. IOPAMIRON [Concomitant]
     Dosage: UNK UKN, UNK
  3. PENTAGIN [Concomitant]
     Indication: PAIN
     Dosage: 5 TO 6 TIMES
  4. PENTAGIN [Concomitant]
     Dosage: 15 MG, UNK
     Dates: start: 20100212
  5. PENTAGIN [Concomitant]
     Dosage: 30 MG, UNK
  6. PENTAGIN [Concomitant]
     Dosage: 15 MG, UNK
  7. PENTAGIN [Concomitant]
     Dosage: 15 MG, UNK
  8. OYPALOMIN [Concomitant]
     Dosage: UNK UKN, UNK

REACTIONS (6)
  - Renal failure acute [Fatal]
  - Cardio-respiratory arrest [Not Recovered/Not Resolved]
  - Blood glucose increased [Unknown]
  - White blood cell count increased [Unknown]
  - Gamma-glutamyltransferase decreased [Unknown]
  - C-reactive protein increased [Unknown]
